FAERS Safety Report 8272540-9 (Version None)
Quarter: 2012Q2

REPORT INFORMATION
  Report Type: 
  Country: None (occurrence: None)
  Receive Date: 20120410
  Receipt Date: 20120330
  Transmission Date: 20120825
  Serious: Yes (Hospitalization)
  Sender: FDA-Public Use
  Company Number: IT-ROCHE-1057453

PATIENT
  Age: 73 Year
  Sex: Male

DRUGS (2)
  1. ALTEPLASE [Suspect]
     Indication: CEREBROVASCULAR ACCIDENT
  2. ALTEPLASE [Suspect]
     Dosage: UNSPECIFIED DOSE

REACTIONS (4)
  - NEUROLOGICAL DECOMPENSATION [None]
  - APHASIA [None]
  - HEMIPLEGIA [None]
  - ISCHAEMIC STROKE [None]
